FAERS Safety Report 6993020-4 (Version None)
Quarter: 2010Q3

REPORT INFORMATION
  Report Type: 
  Country: None (occurrence: None)
  Receive Date: 20100916
  Receipt Date: 20100916
  Transmission Date: 20110219
  Serious: Yes (Life-Threatening, Hospitalization)
  Sender: FDA-Public Use
  Company Number: None

PATIENT
  Age: 64 Year
  Sex: Female
  Weight: 108.8633 kg

DRUGS (2)
  1. CARVEDILOL [Suspect]
     Dosage: 1 TABLET TWICE DAILY PO
     Route: 048
     Dates: start: 20100322, end: 20100629
  2. COREG CR [Suspect]
     Dosage: 1 TABLET ONCE DAILY PO
     Route: 048
     Dates: start: 20090505, end: 20100430

REACTIONS (20)
  - ARRHYTHMIA [None]
  - ASTHENIA [None]
  - CARDIAC FAILURE CONGESTIVE [None]
  - CHEST PAIN [None]
  - DIZZINESS [None]
  - DYSPNOEA [None]
  - FATIGUE [None]
  - GAIT DISTURBANCE [None]
  - GASTRIC DISORDER [None]
  - NAUSEA [None]
  - OEDEMA PERIPHERAL [None]
  - PLEURAL EFFUSION [None]
  - PULMONARY HYPERTENSION [None]
  - RENAL FAILURE [None]
  - SWELLING [None]
  - SYNCOPE [None]
  - WALKING AID USER [None]
  - WEIGHT INCREASED [None]
  - WHEELCHAIR USER [None]
  - WHEEZING [None]
